FAERS Safety Report 9751473 (Version 4)
Quarter: 2014Q1

REPORT INFORMATION
  Report Type: Spontaneous
  Country: US (occurrence: US)
  Receive Date: 20131212
  Receipt Date: 20140313
  Transmission Date: 20141002
  Serious: Yes (Hospitalization, Other)
  Sender: FDA-Public Use
  Company Number: US-UCBSA-105115

PATIENT
  Age: 51 Year
  Sex: Female
  Weight: 63.96 kg

DRUGS (6)
  1. NEUPRO [Suspect]
     Indication: PARKINSON^S DISEASE
     Dosage: 2 MG FOR ONE WEEK AND THE DOSE WAS UPTRITATED
     Dates: start: 201307, end: 2013
  2. NEUPRO [Suspect]
     Indication: PARKINSON^S DISEASE
     Route: 062
     Dates: start: 201309
  3. CARBIDOPA/LEVODOPA [Concomitant]
     Indication: PARKINSON^S DISEASE
     Dosage: 25/100 MG
  4. AMANTADINE [Concomitant]
     Indication: PARKINSON^S DISEASE
  5. COMTAN [Concomitant]
     Indication: PARKINSON^S DISEASE
     Dates: start: 201305
  6. SELEGILINE [Concomitant]
     Indication: PARKINSON^S DISEASE
     Route: 048
     Dates: start: 201306, end: 201312

REACTIONS (3)
  - Anaemia [Recovering/Resolving]
  - Haematocrit decreased [Recovering/Resolving]
  - Constipation [Unknown]
